FAERS Safety Report 6368871-X (Version None)
Quarter: 2009Q3

REPORT INFORMATION
  Report Type: 
  Country: None (occurrence: None)
  Receive Date: 20090922
  Receipt Date: 20090921
  Transmission Date: 20100115
  Serious: Yes (Other)
  Sender: FDA-Public Use
  Company Number: US-PFIZER INC-2009247520

PATIENT
  Sex: Male
  Weight: 97.5 kg

DRUGS (2)
  1. CHANTIX [Suspect]
     Indication: SMOKING CESSATION THERAPY
     Dosage: FREQUENCY: 2X/DAY, EVERYDAY;
     Dates: start: 20090718, end: 20090726
  2. SERTRALINE HYDROCHLORIDE [Concomitant]

REACTIONS (1)
  - SELF-INJURIOUS IDEATION [None]
